FAERS Safety Report 21653183 (Version 1)
Quarter: 2022Q4

REPORT INFORMATION
  Report Type: Other
  Country: CN (occurrence: None)
  Receive Date: 20221128
  Receipt Date: 20221128
  Transmission Date: 20230113
  Serious: Yes (Other)
  Sender: FDA-Public Use
  Company Number: CN-ROCHE-3225433

PATIENT
  Age: 70 Year
  Sex: Female

DRUGS (4)
  1. BEVACIZUMAB [Suspect]
     Active Substance: BEVACIZUMAB
     Indication: Lung adenocarcinoma
     Route: 065
  2. PEMETREXED [Concomitant]
     Active Substance: PEMETREXED
  3. BRIGATINIB [Concomitant]
     Active Substance: BRIGATINIB
     Dosage: INITIATED AT 80 MG ONCE DAILY FOR ONE WEEK AND INCREASED BY 40 MG/DAY EVERY ONE WEEK OF TREATMENT, A
  4. CETUXIMAB [Concomitant]
     Active Substance: CETUXIMAB
     Dosage: 300 MG BI WEEKLY FOR THE FIRST 2 CYCLES, AND MAINTENANCE DOSE WAS TO 400 MG BI WEEKLY

REACTIONS (1)
  - Lung adenocarcinoma [Unknown]
